FAERS Safety Report 8887268 (Version 1)
Quarter: 2012Q4

REPORT INFORMATION
  Report Type: 
  Country: AU (occurrence: AU)
  Receive Date: 20121101
  Receipt Date: 20121101
  Transmission Date: 20130627
  Serious: Yes (Other)
  Sender: FDA-Public Use
  Company Number: AU-B.I. PHARMACEUTICALS,INC./RIDGEFIELD-2009-BP-12379YA

PATIENT
  Sex: Male

DRUGS (5)
  1. TAMSULOSIN [Suspect]
     Route: 065
     Dates: start: 200909, end: 20091019
  2. KARVEA (IRBESARTAN) [Concomitant]
  3. MOBIC (MELOXICAM) [Concomitant]
  4. PANADOL (PARACETAMOL) [Concomitant]
  5. AMITRIPTYLINE (AMITRIPTYLINE) [Concomitant]

REACTIONS (3)
  - Intraocular pressure increased [Recovered/Resolved]
  - Nasal congestion [Recovered/Resolved]
  - Rhinorrhoea [Recovered/Resolved]
